FAERS Safety Report 8828038 (Version 1)
Quarter: 2012Q4

REPORT INFORMATION
  Report Type: 
  Country: SE (occurrence: SE)
  Receive Date: 20121008
  Receipt Date: 20121008
  Transmission Date: 20130627
  Serious: Yes (Other)
  Sender: FDA-Public Use
  Company Number: PHHY2012SE084484

PATIENT
  Sex: Male

DRUGS (1)
  1. ILARIS [Suspect]
     Dosage: Code not broken

REACTIONS (3)
  - Mesenteritis [Unknown]
  - Abdominal distension [Unknown]
  - Abdominal pain [Unknown]
